FAERS Safety Report 9855533 (Version 1)
Quarter: 2014Q1

REPORT INFORMATION
  Report Type: Report from Study
  Country: FR (occurrence: FR)
  Receive Date: 20140130
  Receipt Date: 20140130
  Transmission Date: 20141002
  Serious: Yes (Other)
  Sender: FDA-Public Use
  Company Number: FR-ALEXION-A201400144

PATIENT
  Age: 63 Year
  Sex: 0

DRUGS (2)
  1. SOLIRIS [Suspect]
     Indication: TRANSPLANT REJECTION
     Dosage: UNK
     Route: 042
     Dates: start: 201303, end: 201304
  2. SOLIRIS [Suspect]
     Indication: OFF LABEL USE
     Dosage: UNK
     Route: 042
     Dates: start: 201304, end: 201310

REACTIONS (3)
  - Osteomyelitis [Recovered/Resolved with Sequelae]
  - Renal transplant failure [Recovered/Resolved]
  - Off label use [Unknown]
